FAERS Safety Report 5569602-3 (Version None)
Quarter: 2007Q4

REPORT INFORMATION
  Report Type: 
  Country: None (occurrence: None)
  Receive Date: 20071220
  Receipt Date: 20071210
  Transmission Date: 20080405
  Serious: Yes (Other)
  Sender: FDA-Public Use
  Company Number: US-RANBAXY-2007US-08246

PATIENT

DRUGS (2)
  1. ISOTRETINOIN ORAL FAMILY [Suspect]
     Indication: DRUG USE FOR UNKNOWN INDICATION
     Dosage: 20 MG, QD
     Route: 048
     Dates: start: 20070516, end: 20070529
  2. ISOTRETINOIN ORAL FAMILY [Suspect]
     Dosage: 20 MG, BID
     Route: 048
     Dates: start: 20070529, end: 20070619

REACTIONS (2)
  - ABORTION SPONTANEOUS [None]
  - PREGNANCY [None]
